FAERS Safety Report 19192647 (Version 1)
Quarter: 2021Q2

REPORT INFORMATION
  Report Type: Spontaneous
  Country: SE (occurrence: SE)
  Receive Date: 20210428
  Receipt Date: 20210428
  Transmission Date: 20210717
  Serious: Yes (Hospitalization)
  Sender: FDA-Public Use
  Company Number: SE-ASTRAZENECA-2021A335811

PATIENT
  Age: 76 Year
  Sex: Male

DRUGS (6)
  1. FORXIGA [Suspect]
     Active Substance: DAPAGLIFLOZIN
     Indication: CARDIAC FAILURE
     Route: 048
     Dates: start: 20210311, end: 20210325
  2. FURIX [Concomitant]
     Dates: start: 2012
  3. WARAN [Concomitant]
     Active Substance: WARFARIN SODIUM
     Dates: start: 2015
  4. BISOPROLOL [Concomitant]
     Active Substance: BISOPROLOL
     Dates: start: 2005
  5. CANDESARTAN CILEXETIL. [Concomitant]
     Active Substance: CANDESARTAN CILEXETIL
     Dates: start: 2012, end: 2021
  6. SPIRONOLACTONE. [Concomitant]
     Active Substance: SPIRONOLACTONE
     Dates: start: 2012

REACTIONS (1)
  - Umbilical hernia, obstructive [Recovering/Resolving]

NARRATIVE: CASE EVENT DATE: 20210324
